FAERS Safety Report 4580336-4 (Version None)
Quarter: 2005Q1

REPORT INFORMATION
  Report Type: 
  Country: None (occurrence: None)
  Receive Date: 20050127
  Receipt Date: 20040915
  Transmission Date: 20050727
  Serious: No
  Sender: FDA-Public Use
  Company Number: USA040772663

PATIENT
  Age: 6 Year
  Sex: Male
  Weight: 28 kg

DRUGS (6)
  1. STRATTERA [Suspect]
     Indication: ATTENTION DEFICIT/HYPERACTIVITY DISORDER
     Dosage: 25 MG IN THE MORNING
     Dates: start: 20040525
  2. ZYRTEC [Concomitant]
  3. CLARINEX [Concomitant]
  4. CLARITIN [Concomitant]
  5. CONCERTA [Concomitant]
  6. CEFAZOLIN [Concomitant]

REACTIONS (8)
  - COUGH [None]
  - DISTURBANCE IN ATTENTION [None]
  - FEELING ABNORMAL [None]
  - NAUSEA [None]
  - SINUSITIS [None]
  - SOMNOLENCE [None]
  - VOMITING [None]
  - WEIGHT DECREASED [None]
